FAERS Safety Report 5261928-6 (Version None)
Quarter: 2007Q1

REPORT INFORMATION
  Report Type: 
  Country: None (occurrence: None)
  Receive Date: 20070308
  Receipt Date: 20070301
  Transmission Date: 20070707
  Serious: Yes (Death, Hospitalization, Other)
  Sender: FDA-Public Use
  Company Number: 163-20785-06050609

PATIENT
  Age: 85 Year
  Sex: Male

DRUGS (9)
  1. THALOMID [Suspect]
     Indication: MULTIPLE MYELOMA
     Dosage: 150 MG, 3 IN 1 D, ORAL
     Route: 048
     Dates: start: 20040528, end: 20060901
  2. ASPIRIN [Concomitant]
  3. COLACE (DOCUSATE SODIUM) [Concomitant]
  4. QUESTRAN [Concomitant]
  5. FLORA Q [Concomitant]
  6. PROSCAR [Concomitant]
  7. ATENOLOL [Concomitant]
  8. LASIX [Concomitant]
  9. COUMADIN [Concomitant]

REACTIONS (18)
  - ACIDOSIS [None]
  - ANAEMIA [None]
  - BLOOD ALBUMIN DECREASED [None]
  - COUGH [None]
  - DECREASED APPETITE [None]
  - DIARRHOEA [None]
  - FIBRIN D DIMER INCREASED [None]
  - HAEMOPTYSIS [None]
  - HYPOCALCAEMIA [None]
  - HYPOXIA [None]
  - LUNG INFILTRATION [None]
  - MALNUTRITION [None]
  - MYOCARDIAL INFARCTION [None]
  - NEUROPATHY [None]
  - PLEURAL EFFUSION [None]
  - RENAL FAILURE ACUTE [None]
  - THROMBOCYTOPENIA [None]
  - WEIGHT DECREASED [None]
